FAERS Safety Report 23083322 (Version 1)
Quarter: 2023Q4

REPORT INFORMATION
  Report Type: Spontaneous
  Country: US (occurrence: None)
  Receive Date: 20231017
  Receipt Date: 20231017
  Transmission Date: 20240109
  Serious: Yes (Hospitalization)
  Sender: FDA-Public Use
  Company Number: None

PATIENT
  Age: 46 Year
  Sex: Male

DRUGS (1)
  1. TESTOSTERONE [Suspect]
     Active Substance: TESTOSTERONE
     Dosage: OTHER STRENGTH : 1.62% 20.25 MG;?
     Dates: start: 20221202, end: 20230131

REACTIONS (6)
  - Pulmonary embolism [None]
  - Deep vein thrombosis [None]
  - Pain in extremity [None]
  - Supraventricular tachycardia [None]
  - Deep vein thrombosis [None]
  - Dyspnoea [None]

NARRATIVE: CASE EVENT DATE: 20230131
